FAERS Safety Report 13229266 (Version 4)
Quarter: 2017Q2

REPORT INFORMATION
  Report Type: Spontaneous
  Country: JP (occurrence: JP)
  Receive Date: 20170214
  Receipt Date: 20170523
  Transmission Date: 20170830
  Serious: Yes (Life-Threatening, Hospitalization, Other)
  Sender: FDA-Public Use
  Company Number: JP-ROCHE-1892902

PATIENT
  Age: 61 Year
  Sex: Female
  Weight: 41 kg

DRUGS (4)
  1. ELPLAT [Suspect]
     Active Substance: OXALIPLATIN
     Indication: COLON CANCER
     Route: 041
     Dates: start: 20161017, end: 20161017
  2. XELODA [Suspect]
     Active Substance: CAPECITABINE
     Indication: COLON CANCER
     Dosage: 2 WEEKS ADMINISTRATION FOLLOWED BY 1 WEEK REST.?MOST RECENT DOSE ON 31/OCT/2016
     Route: 048
     Dates: start: 20161017
  3. AVASTIN [Suspect]
     Active Substance: BEVACIZUMAB
     Indication: COLON CANCER
     Dosage: TREATMENT CYCLE OF THIS MEDICINE NUMBER: 1?TREATMENT LINE: 1ST LINE
     Route: 041
     Dates: start: 20161017, end: 20161017
  4. DECADRON [Concomitant]
     Active Substance: DEXAMETHASONE
     Dosage: TAKEN FOR CHEMICAL TREATMENT AND 2ND DAY, 3RD DAY.
     Route: 065

REACTIONS (4)
  - Ileus [Unknown]
  - Neuralgia [Recovering/Resolving]
  - Peptic ulcer [Unknown]
  - Gastrointestinal perforation [Recovered/Resolved]

NARRATIVE: CASE EVENT DATE: 20161017
